FAERS Safety Report 15290862 (Version 1)
Quarter: 2018Q3

REPORT INFORMATION
  Report Type: Report from Study
  Country: CA (occurrence: CA)
  Receive Date: 20180817
  Receipt Date: 20180817
  Transmission Date: 20181010
  Serious: Yes (Life-Threatening, Hospitalization, Other)
  Sender: FDA-Public Use
  Company Number: CA-TEVA-2018-CA-914085

PATIENT
  Age: 59 Year
  Sex: Female

DRUGS (8)
  1. METHOTREXATE. [Suspect]
     Active Substance: METHOTREXATE
     Dosage: MAY/JUNE 2018
     Route: 065
  2. SERTRALINE [Concomitant]
     Active Substance: SERTRALINE HYDROCHLORIDE
     Dosage: 225 MILLIGRAM DAILY;
     Route: 048
  3. VITAMIN D [Concomitant]
     Active Substance: CHOLECALCIFEROL
     Dosage: 1000 IU (INTERNATIONAL UNIT) DAILY;
     Route: 048
  4. ROBAXACET [Concomitant]
     Active Substance: ACETAMINOPHEN\METHOCARBAMOL
  5. ADVIL [Concomitant]
     Active Substance: IBUPROFEN
  6. COPAXONE [Suspect]
     Active Substance: GLATIRAMER ACETATE
     Indication: MULTIPLE SCLEROSIS
     Dosage: 20 MILLIGRAM/MILLILITERS DAILY;
     Route: 058
     Dates: start: 20120529, end: 201801
  7. PREDNISONE. [Concomitant]
     Active Substance: PREDNISONE
     Route: 048
  8. VITAMIN B12 [Concomitant]
     Active Substance: CYANOCOBALAMIN
     Route: 048

REACTIONS (18)
  - Hypermetabolism [Unknown]
  - Lymphoma [Not Recovered/Not Resolved]
  - Nasal congestion [Unknown]
  - Spinal fracture [Unknown]
  - Pleural effusion [Unknown]
  - Lymphadenopathy [Unknown]
  - Metastases to bone [Unknown]
  - Paranasal sinus benign neoplasm [Unknown]
  - Osteolysis [Unknown]
  - Bone pain [Unknown]
  - Lymphoma [Unknown]
  - Intracranial mass [Unknown]
  - Neoplasm progression [Unknown]
  - Hepatic lesion [Unknown]
  - Disease progression [Unknown]
  - Abdominal neoplasm [Unknown]
  - Fatigue [Unknown]
  - Rash [Unknown]

NARRATIVE: CASE EVENT DATE: 201709
